FAERS Safety Report 13357407 (Version 1)
Quarter: 2017Q1

REPORT INFORMATION
  Report Type: Spontaneous
  Country: RU (occurrence: RU)
  Receive Date: 20170322
  Receipt Date: 20170322
  Transmission Date: 20170429
  Serious: Yes (Hospitalization)
  Sender: FDA-Public Use
  Company Number: RU-ASTRAZENECA-2017SE28429

PATIENT
  Age: 73 Year
  Sex: Male
  Weight: 70 kg

DRUGS (7)
  1. ZOCARDIS [Concomitant]
  2. CONCOR [Concomitant]
     Active Substance: BISOPROLOL FUMARATE
  3. VEROSPIRON [Concomitant]
     Active Substance: SPIRONOLACTONE
  4. BRILINTA [Suspect]
     Active Substance: TICAGRELOR
     Indication: MYOCARDIAL INFARCTION
     Route: 048
     Dates: start: 201502
  5. CRESTOR [Concomitant]
     Active Substance: ROSUVASTATIN CALCIUM
  6. THROMBO ASS [Concomitant]
     Active Substance: ASPIRIN
  7. CAPOTEN [Concomitant]
     Active Substance: CAPTOPRIL

REACTIONS (3)
  - Vascular stent restenosis [Unknown]
  - Postinfarction angina [Unknown]
  - Intentional product misuse [Unknown]

NARRATIVE: CASE EVENT DATE: 201502
